FAERS Safety Report 25621617 (Version 5)
Quarter: 2025Q4

REPORT INFORMATION
  Report Type: Report from Study
  Country: CO (occurrence: CO)
  Receive Date: 20250730
  Receipt Date: 20251216
  Transmission Date: 20260118
  Serious: Yes (Other)
  Sender: MIRUM PHARMACEUTICALS
  Company Number: CO-MIRUM PHARMACEUTICALS, INC.-CO-MIR-24-00074

PATIENT

DRUGS (15)
  1. LIVMARLI [Suspect]
     Active Substance: MARALIXIBAT CHLORIDE
     Indication: Alagille syndrome
     Dosage: 1.8 MILLILITER, QD
     Route: 048
     Dates: start: 20250925
  2. LIVMARLI [Suspect]
     Active Substance: MARALIXIBAT CHLORIDE
     Dosage: 1.8 MILLILITER, QD
     Route: 048
     Dates: start: 20250401, end: 20250507
  3. LIVMARLI [Suspect]
     Active Substance: MARALIXIBAT CHLORIDE
     Dosage: 1.8 MILLILITER, QD
     Route: 048
     Dates: start: 20241224, end: 20250307
  4. LIVMARLI [Suspect]
     Active Substance: MARALIXIBAT CHLORIDE
     Dosage: 1.8 MILLILITER, QD
     Route: 048
     Dates: start: 20240306, end: 20240905
  5. LIVMARLI [Suspect]
     Active Substance: MARALIXIBAT CHLORIDE
     Dosage: 1.6 MILLILITER, QD (ADMINISTRATIVE DIFFICULTIES)
     Route: 048
     Dates: start: 20240106, end: 20240222
  6. LIVMARLI [Suspect]
     Active Substance: MARALIXIBAT CHLORIDE
     Dosage: 1.8 MILLILITER, QD
     Route: 048
     Dates: start: 20231010, end: 20240222
  7. URSODIOL [Concomitant]
     Active Substance: URSODIOL
     Indication: Alagille syndrome
     Dosage: 600 MILLIGRAM, QD
     Route: 048
     Dates: end: 20250723
  8. URSODIOL [Concomitant]
     Active Substance: URSODIOL
     Indication: Pruritus
     Dosage: 600 MILLIGRAM, Q12H
     Route: 048
     Dates: start: 20250724
  9. RIFAMPIN [Concomitant]
     Active Substance: RIFAMPIN
     Indication: Alagille syndrome
     Dosage: 300 MILLIGRAM, QD
     Route: 048
     Dates: end: 20250723
  10. RIFAMPIN [Concomitant]
     Active Substance: RIFAMPIN
     Dosage: 300 MILLIGRAM, Q12H
     Route: 048
     Dates: start: 20250724
  11. CHOLECALCIFEROL [Concomitant]
     Active Substance: CHOLECALCIFEROL
     Indication: Alagille syndrome
     Dosage: 2000 INTERNATIONAL UNIT, QD
     Route: 048
     Dates: end: 20250723
  12. CHOLECALCIFEROL [Concomitant]
     Active Substance: CHOLECALCIFEROL
     Dosage: 4000 INTERNATIONAL UNIT, QD
     Route: 048
     Dates: start: 20250724
  13. VITAMIN E [Concomitant]
     Active Substance: .ALPHA.-TOCOPHEROL
     Indication: Alagille syndrome
     Dosage: 400 MILLIGRAM, QD
     Route: 048
  14. PHYTONADIONE [Concomitant]
     Active Substance: PHYTONADIONE
     Indication: Alagille syndrome
     Dosage: 10 MILLIGRAM, WEEKLY
     Route: 048
  15. HYDROXYZINE [Concomitant]
     Active Substance: HYDROXYZINE HYDROCHLORIDE
     Indication: Pruritus
     Dosage: 25 MILLIGRAM, QD
     Route: 048

REACTIONS (13)
  - Bile acids increased [Not Recovered/Not Resolved]
  - Transaminases increased [Not Recovered/Not Resolved]
  - Blood cholesterol increased [Unknown]
  - Abdominal discomfort [Recovered/Resolved]
  - Abdominal discomfort [Not Recovered/Not Resolved]
  - Pruritus [Recovered/Resolved]
  - Pruritus [Recovered/Resolved]
  - Frustration tolerance decreased [Recovered/Resolved]
  - Product dispensing issue [Not Recovered/Not Resolved]
  - Insurance issue [Recovered/Resolved]
  - Insurance issue [Recovered/Resolved]
  - Therapy interrupted [Recovered/Resolved]
  - Therapy interrupted [Recovered/Resolved]

NARRATIVE: CASE EVENT DATE: 20240223
